FAERS Safety Report 24818386 (Version 2)
Quarter: 2025Q1

REPORT INFORMATION
  Report Type: Spontaneous
  Country: IR (occurrence: IR)
  Receive Date: 20250108
  Receipt Date: 20250113
  Transmission Date: 20250409
  Serious: Yes (Hospitalization, Other)
  Sender: ACCORD
  Company Number: IR-Accord-462955

PATIENT
  Age: 43 Year
  Sex: Female

DRUGS (4)
  1. HYDROXYCHLOROQUINE [Suspect]
     Active Substance: HYDROXYCHLOROQUINE
     Indication: Systemic lupus erythematosus
  2. CELLCEPT [Suspect]
     Active Substance: MYCOPHENOLATE MOFETIL
     Indication: Systemic lupus erythematosus
  3. PREDNISOLONE [Suspect]
     Active Substance: PREDNISOLONE
     Indication: Systemic lupus erythematosus
  4. ASPIRIN [Concomitant]
     Active Substance: ASPIRIN
     Indication: Systemic lupus erythematosus

REACTIONS (1)
  - Strongyloidiasis [Recovered/Resolved]
